FAERS Safety Report 4314575-4 (Version None)
Quarter: 2004Q1

REPORT INFORMATION
  Report Type: 
  Country: None (occurrence: None)
  Receive Date: 20040308
  Receipt Date: 20040225
  Transmission Date: 20041129
  Serious: Yes (Hospitalization)
  Sender: FDA-Public Use
  Company Number: 2004-DE-00922GD

PATIENT
  Age: 67 Year
  Sex: Female

DRUGS (3)
  1. METHOTREXATE [Suspect]
     Indication: RHEUMATOID ARTHRITIS
     Dosage: 2.5 MG (WEEKLY);SEVERAL MONTHS
  2. PREDNISONE [Suspect]
     Indication: RHEUMATOID ARTHRITIS
     Dosage: 20 MG; SEVERAL MONTHS
  3. ETANERCEPT (ETANERCEPT) [Suspect]
     Indication: RHEUMATOID ARTHRITIS
     Dosage: 25 MG (TWICE WEEKLY)

REACTIONS (9)
  - BRAIN ABSCESS [None]
  - COMA [None]
  - LUNG ABSCESS [None]
  - LUNG DISORDER [None]
  - MENINGITIS [None]
  - PLEURISY [None]
  - PURULENT DISCHARGE [None]
  - SEPSIS [None]
  - URINARY TRACT INFECTION PSEUDOMONAL [None]
